FAERS Safety Report 5311295-4 (Version None)
Quarter: 2007Q2

REPORT INFORMATION
  Report Type: 
  Country: None (occurrence: None)
  Receive Date: 20070430
  Receipt Date: 20070418
  Transmission Date: 20071010
  Serious: Yes (Hospitalization)
  Sender: FDA-Public Use
  Company Number: PHRM2007FR01302

PATIENT
  Age: 80 Year
  Sex: Female

DRUGS (1)
  1. TEGRETOL [Suspect]
     Indication: TRIGEMINAL NEURALGIA
     Dosage: 1 G/DAY
     Route: 048
     Dates: start: 20040715

REACTIONS (3)
  - CARDIAC PACEMAKER INSERTION [None]
  - CONDUCTION DISORDER [None]
  - SYNCOPE [None]
